FAERS Safety Report 14239100 (Version 1)
Quarter: 2017Q4

REPORT INFORMATION
  Report Type: Spontaneous
  Country: US (occurrence: US)
  Receive Date: 20171127
  Receipt Date: 20171127
  Transmission Date: 20180321
  Serious: Yes (Other)
  Sender: FDA-Public Use
  Company Number: None

PATIENT
  Age: 45 Year
  Sex: Female

DRUGS (2)
  1. DIVALPROEX DR [Suspect]
     Active Substance: DIVALPROEX SODIUM
     Route: 048
  2. DIVALPROEX DR [Suspect]
     Active Substance: DIVALPROEX SODIUM
     Route: 048

REACTIONS (9)
  - Therapy change [None]
  - Mental status changes [None]
  - Poor quality sleep [None]
  - Affective disorder [None]
  - Ammonia increased [None]
  - Encephalopathy [None]
  - Hepatitis acute [None]
  - Confusional state [None]
  - Aphasia [None]

NARRATIVE: CASE EVENT DATE: 20171009
